FAERS Safety Report 5067806-X (Version None)
Quarter: 2006Q3

REPORT INFORMATION
  Report Type: 
  Country: None (occurrence: None)
  Receive Date: 20060802
  Receipt Date: 20060726
  Transmission Date: 20061208
  Serious: Yes (Other)
  Sender: FDA-Public Use
  Company Number: JP-JPN-A200602822

PATIENT
  Age: 19 Year
  Sex: Female

DRUGS (2)
  1. PAXIL [Suspect]
     Indication: PHOBIA
     Dosage: 10MG PER DAY
     Route: 048
     Dates: start: 20060718, end: 20060720
  2. LORAZEPAM [Concomitant]
     Dosage: 1.5MG THREE TIMES PER DAY
     Route: 048
     Dates: start: 20060718, end: 20060720

REACTIONS (2)
  - AGGRESSION [None]
  - IRRITABILITY [None]
